FAERS Safety Report 16135466 (Version 1)
Quarter: 2019Q1

REPORT INFORMATION
  Report Type: Spontaneous
  Country: JP (occurrence: JP)
  Receive Date: 20190329
  Receipt Date: 20190329
  Transmission Date: 20190418
  Serious: Yes (Life-Threatening, Other)
  Sender: FDA-Public Use
  Company Number: JP-ELI_LILLY_AND_COMPANY-JP201903011691

PATIENT
  Age: 70 Year
  Sex: Male

DRUGS (6)
  1. GEMCITABINE HYDROCHLORIDE. [Suspect]
     Active Substance: GEMCITABINE HYDROCHLORIDE
     Indication: BLADDER TRANSITIONAL CELL CARCINOMA
     Dosage: ON DAY 1 AND DAY 8 OF A 3 WEEK CYCLE
     Route: 042
     Dates: start: 201106, end: 2011
  2. OXALIPLATIN. [Concomitant]
     Active Substance: OXALIPLATIN
     Indication: METASTASES TO LYMPH NODES
  3. OXALIPLATIN. [Concomitant]
     Active Substance: OXALIPLATIN
     Indication: BLADDER TRANSITIONAL CELL CARCINOMA
     Dosage: ON DAY 1 OF A 3-WEEK CYCLE
     Route: 042
     Dates: start: 201106
  4. GEMCITABINE HYDROCHLORIDE. [Suspect]
     Active Substance: GEMCITABINE HYDROCHLORIDE
     Indication: METASTASES TO LYMPH NODES
  5. GEMCITABINE HYDROCHLORIDE. [Suspect]
     Active Substance: GEMCITABINE HYDROCHLORIDE
     Indication: METASTASES TO LUNG
  6. OXALIPLATIN. [Concomitant]
     Active Substance: OXALIPLATIN
     Indication: METASTASES TO LUNG

REACTIONS (4)
  - Bone marrow failure [Unknown]
  - Thrombocytopenia [Unknown]
  - Neuropathy peripheral [Unknown]
  - Neutropenia [Unknown]

NARRATIVE: CASE EVENT DATE: 201106
